FAERS Safety Report 7502692-7 (Version None)
Quarter: 2011Q2

REPORT INFORMATION
  Report Type: 
  Country: None (occurrence: None)
  Receive Date: 20110525
  Receipt Date: 20110513
  Transmission Date: 20111010
  Serious: Yes (Hospitalization, Other)
  Sender: FDA-Public Use
  Company Number: PHHY2011FR41162

PATIENT
  Sex: Male

DRUGS (9)
  1. FORLAX [Concomitant]
  2. TERCIAN [Concomitant]
     Dosage: 150 MG, UNK
  3. GLUCOPHAGE [Concomitant]
     Indication: DIABETES MELLITUS
     Dosage: 1 DF, BID
     Route: 048
  4. CLOZAPINE [Suspect]
     Indication: SCHIZOPHRENIA
     Dosage: 350 MG, DAILY
     Route: 048
     Dates: start: 20110201
  5. REPAGLINIDE [Concomitant]
     Indication: DIABETES MELLITUS
     Dosage: 1 DF, TID
     Route: 048
  6. TERCIAN [Concomitant]
     Indication: SCHIZOPHRENIA
     Dosage: 50 MG, UNK
     Route: 048
  7. VENLAFAXINE [Concomitant]
     Indication: SCHIZOPHRENIA
     Dosage: 1 DF, BID
  8. AKINETON [Concomitant]
     Indication: PARKINSONISM
     Dosage: 2 DF, QD
  9. LANSOYL [Concomitant]
     Route: 048

REACTIONS (7)
  - BUNDLE BRANCH BLOCK RIGHT [None]
  - LEFT VENTRICULAR DYSFUNCTION [None]
  - HYPOKINESIA [None]
  - TRICUSPID VALVE INCOMPETENCE [None]
  - CARDIOMYOPATHY [None]
  - CHEST PAIN [None]
  - PULMONARY ARTERIAL PRESSURE [None]
